FAERS Safety Report 6791305-8 (Version None)
Quarter: 2010Q2

REPORT INFORMATION
  Report Type: 
  Country: None (occurrence: None)
  Receive Date: 20100624
  Receipt Date: 20100617
  Transmission Date: 20101027
  Serious: Yes (Other)
  Sender: FDA-Public Use
  Company Number: US-PFIZER INC-2010076445

PATIENT
  Sex: Female
  Weight: 86.2 kg

DRUGS (5)
  1. CHANTIX [Suspect]
     Indication: SMOKING CESSATION THERAPY
     Dosage: FREQUENCY: 2X/DAY,
     Route: 048
     Dates: start: 20090601, end: 20090101
  2. ZOLOFT [Interacting]
     Dosage: UNK
  3. VISTARIL [Interacting]
     Dosage: UNK
  4. BUSPAR [Interacting]
     Dosage: UNK
  5. NICOTROL [Concomitant]
     Indication: SMOKING CESSATION THERAPY
     Route: 048
     Dates: start: 20090501, end: 20090101

REACTIONS (3)
  - AGITATION [None]
  - DRUG INTERACTION [None]
  - TOBACCO WITHDRAWAL SYMPTOMS [None]
